FAERS Safety Report 25895445 (Version 1)
Quarter: 2025Q4

REPORT INFORMATION
  Report Type: Spontaneous
  Country: US (occurrence: US)
  Receive Date: 20251008
  Receipt Date: 20251008
  Transmission Date: 20260117
  Serious: Yes (Hospitalization)
  Sender: DR REDDYS
  Company Number: US-DRL-USA-USA/2025/10/015239

PATIENT
  Age: 74 Year
  Sex: Female

DRUGS (2)
  1. DOFETILIDE [Suspect]
     Active Substance: DOFETILIDE
     Indication: Product used for unknown indication
     Route: 065
  2. TIKOSYN [Suspect]
     Active Substance: DOFETILIDE
     Indication: Product used for unknown indication
     Route: 065

REACTIONS (3)
  - Cardioversion [Unknown]
  - Cardiac ablation [Unknown]
  - Drug ineffective [Unknown]
